FAERS Safety Report 10584003 (Version 1)
Quarter: 2014Q4

REPORT INFORMATION
  Report Type: Spontaneous
  Country: US (occurrence: US)
  Receive Date: 20141114
  Receipt Date: 20141114
  Transmission Date: 20150529
  Serious: No
  Sender: FDA-Public Use
  Company Number: US-US-EMD SERONO, INC.-7333510

PATIENT
  Age: 57 Year
  Sex: Male

DRUGS (1)
  1. SEROSTIM [Suspect]
     Active Substance: SOMATROPIN
     Indication: HIV INFECTION
     Route: 058

REACTIONS (2)
  - Dyspnoea [Unknown]
  - Fluid retention [Unknown]
